FAERS Safety Report 5096486-2 (Version None)
Quarter: 2006Q3

REPORT INFORMATION
  Report Type: 
  Country: None (occurrence: None)
  Receive Date: 20060830
  Receipt Date: 20060817
  Transmission Date: 20061208
  Serious: Yes (Other)
  Sender: FDA-Public Use
  Company Number: 2006BL004934

PATIENT
  Age: 46 Year
  Sex: Male

DRUGS (1)
  1. TROPICAMIDE [Suspect]
     Indication: DRUG USE FOR UNKNOWN INDICATION
     Dosage: 1 APPLICATION; TOPICAL
     Route: 047

REACTIONS (2)
  - BRADYCARDIA [None]
  - SYNCOPE [None]
